FAERS Safety Report 15814934 (Version 1)
Quarter: 2019Q1

REPORT INFORMATION
  Report Type: Spontaneous
  Country: FR (occurrence: FR)
  Receive Date: 20190111
  Receipt Date: 20190111
  Transmission Date: 20190417
  Serious: Yes (Death)
  Sender: FDA-Public Use
  Company Number: FR-ACCORD-101612

PATIENT
  Age: 84 Year
  Sex: Female
  Weight: 42 kg

DRUGS (4)
  1. VALSARTAN. [Suspect]
     Active Substance: VALSARTAN
     Indication: HYPERTENSION
     Route: 048
  2. FUROSEMIDE. [Suspect]
     Active Substance: FUROSEMIDE
     Indication: ACUTE PULMONARY OEDEMA
     Route: 041
     Dates: start: 20180301, end: 20180301
  3. ESIDREX [Suspect]
     Active Substance: HYDROCHLOROTHIAZIDE
     Indication: HYPERTENSION
     Route: 048
     Dates: start: 20180103
  4. LANSOPRAZOLE. [Suspect]
     Active Substance: LANSOPRAZOLE
     Indication: PROPHYLAXIS AGAINST GASTROINTESTINAL ULCER
     Route: 048

REACTIONS (2)
  - Hyponatraemia [Fatal]
  - Acute kidney injury [Fatal]

NARRATIVE: CASE EVENT DATE: 20180301
